FAERS Safety Report 4368344-X (Version None)
Quarter: 2004Q2

REPORT INFORMATION
  Report Type: 
  Country: None (occurrence: None)
  Receive Date: 20040525
  Receipt Date: 20040513
  Transmission Date: 20050107
  Serious: Yes (Hospitalization, Other)
  Sender: FDA-Public Use
  Company Number: HQWYE469219JAN04

PATIENT
  Age: 73 Year
  Sex: Male

DRUGS (10)
  1. IBUPROFEN AND PSEUDOEPHEDRINE HCL [Suspect]
     Dosage: ORAL
     Route: 048
     Dates: start: 20031022, end: 20031027
  2. ACETAMINOPHEN [Suspect]
     Dosage: 1 DOSE THREE TIMES DAILY ORAL
     Route: 048
     Dates: start: 20030702
  3. EXOMUC (ACETYLCYSTEINE) [Suspect]
     Dosage: 1 DOSE THREE TIMES DAILY
     Dates: start: 20031022
  4. KETEK [Suspect]
     Dosage: 400 MG TWICE DAILY
     Dates: start: 20031026, end: 20031028
  5. KETOPROFEN [Suspect]
     Dates: start: 20030920
  6. SILOMAT (CLOBUTINOL HYDROCHLORIDE) [Suspect]
     Dosage: 1 DOSE THREE TIMES DAILY
  7. ARNICA (ARNICA EXTRACT) [Concomitant]
  8. TITANOREINE (CARRAGEEN/LIDOCAINE HYDROCHLORIDE/TITANIUM DIOXIDE/ZINC O [Concomitant]
  9. NIMESULIDE (NIMESULIDE) [Concomitant]
  10. DIMETANE (BROMPHENIRAMNE/PHOLCODINE) [Concomitant]

REACTIONS (8)
  - BLOOD CALCIUM DECREASED [None]
  - BLOOD LACTATE DEHYDROGENASE INCREASED [None]
  - BLOOD PRESSURE INCREASED [None]
  - HAEMOLYTIC URAEMIC SYNDROME [None]
  - HYPOALBUMINAEMIA [None]
  - PROTEIN TOTAL DECREASED [None]
  - RENAL FAILURE ACUTE [None]
  - THROMBOCYTOPENIA [None]
